FAERS Safety Report 5595919-2 (Version None)
Quarter: 2008Q1

REPORT INFORMATION
  Report Type: 
  Country: None (occurrence: None)
  Receive Date: 20080118
  Receipt Date: 20080116
  Transmission Date: 20080703
  Serious: Yes (Hospitalization)
  Sender: FDA-Public Use
  Company Number: FR-ASTRAZENECA-2008CG00100

PATIENT
  Age: 18124 Day
  Sex: Male

DRUGS (10)
  1. INEXIUM [Suspect]
     Route: 042
     Dates: start: 20071122, end: 20071209
  2. THIOPENTAL SODIUM [Suspect]
     Indication: INTRACRANIAL PRESSURE INCREASED
     Route: 042
     Dates: start: 20071123, end: 20071207
  3. ROCEPHIN [Suspect]
     Indication: ENTEROBACTER INFECTION
     Dates: start: 20071126, end: 20071210
  4. CIPROFLOXACIN HCL [Suspect]
     Indication: ENTEROBACTER INFECTION
     Route: 042
     Dates: start: 20071126, end: 20071210
  5. FENTANYL [Concomitant]
     Dates: start: 20071122, end: 20071207
  6. NORADRENALINE [Concomitant]
     Dates: start: 20071122, end: 20071208
  7. CERNEVIT-12 [Concomitant]
     Dates: end: 20071209
  8. NONAN [Concomitant]
     Dates: end: 20071209
  9. VITAMIN B1 AND B6 [Concomitant]
  10. KETAMINE HCL [Concomitant]
     Indication: INTRACRANIAL PRESSURE INCREASED
     Dates: start: 20071123, end: 20071205

REACTIONS (2)
  - LEUKOPENIA [None]
  - NEUTROPENIA [None]
